FAERS Safety Report 21845675 (Version 3)
Quarter: 2023Q2

REPORT INFORMATION
  Report Type: Report from Study
  Country: US (occurrence: US)
  Receive Date: 20230111
  Receipt Date: 20230410
  Transmission Date: 20230722
  Serious: No
  Sender: FDA-Public Use
  Company Number: US-ABBVIE-4232468

PATIENT
  Sex: Female

DRUGS (5)
  1. HUMIRA [Suspect]
     Active Substance: ADALIMUMAB
     Indication: Rheumatoid arthritis
     Route: 058
     Dates: start: 20180501
  2. HUMIRA [Suspect]
     Active Substance: ADALIMUMAB
     Indication: Psoriatic arthropathy
     Route: 058
  3. METOPROLOL [Concomitant]
     Active Substance: METOPROLOL
     Indication: Blood pressure management
  4. LOVASTATIN [Concomitant]
     Active Substance: LOVASTATIN
     Indication: Blood pressure management
  5. PENTOXIFYLLINE [Suspect]
     Active Substance: PENTOXIFYLLINE
     Indication: Cardiovascular disorder
     Route: 065

REACTIONS (6)
  - Skin discolouration [Unknown]
  - Psoriasis [Unknown]
  - Injection site bruising [Unknown]
  - Injection site pain [Unknown]
  - Pain in extremity [Unknown]
  - Sleep disorder [Unknown]
